FAERS Safety Report 9115138 (Version 2)
Quarter: 2013Q1

REPORT INFORMATION
  Report Type: Spontaneous
  Country: US (occurrence: None)
  Receive Date: 20130125
  Receipt Date: 20130305
  Transmission Date: 20140127
  Serious: Yes (Death, Hospitalization)
  Sender: FDA-Public Use
  Company Number: FK201201851

PATIENT
  Age: 71 Year
  Sex: Male
  Weight: 85 kg

DRUGS (3)
  1. PEMETREXED [Suspect]
     Indication: LUNG ADENOCARCINOMA STAGE IV
     Route: 042
     Dates: start: 20120308, end: 20120522
  2. CARBOPLATIN [Suspect]
     Indication: LUNG ADENOCARCINOMA STAGE IV
     Route: 042
     Dates: start: 20120308, end: 20120522
  3. FARLETUZUMAB [Suspect]
     Indication: LUNG ADENOCARCINOMA STAGE IV
     Dosage: DAY 1+8 OF CL THEN DAY 1 OF EACH CYCLE
     Route: 042

REACTIONS (3)
  - Febrile neutropenia [None]
  - Anaemia [None]
  - Disease progression [None]
